FAERS Safety Report 24109434 (Version 1)
Quarter: 2024Q3

REPORT INFORMATION
  Report Type: Report from Study
  Country: US (occurrence: US)
  Receive Date: 20240718
  Receipt Date: 20240718
  Transmission Date: 20241016
  Serious: Yes (Death)
  Sender: BAYER
  Company Number: US-BAYER-2024A101651

PATIENT
  Age: 76 Year
  Sex: Female
  Weight: 73.469 kg

DRUGS (18)
  1. ADEMPAS [Suspect]
     Active Substance: RIOCIGUAT
     Indication: Pulmonary arterial hypertension
     Dosage: UNK
     Dates: start: 20240429
  2. ADEMPAS [Suspect]
     Active Substance: RIOCIGUAT
     Indication: Pulmonary arterial hypertension
     Dosage: 1 MG, TID
     Route: 048
  3. SILDENAFIL CITRATE [Concomitant]
     Active Substance: SILDENAFIL CITRATE
  4. MIDODRINE HYDROCHLORIDE [Concomitant]
     Active Substance: MIDODRINE HYDROCHLORIDE
  5. OXYGEN [Concomitant]
     Active Substance: OXYGEN
  6. POTASSIUM CHLORIDE [Concomitant]
     Active Substance: POTASSIUM CHLORIDE
  7. CALCITRIOL [Concomitant]
     Active Substance: CALCITRIOL
  8. LANTUS SOLOSTAR [Concomitant]
     Active Substance: INSULIN GLARGINE
  9. METOLAZONE [Concomitant]
     Active Substance: METOLAZONE
  10. TACROLIMUS [Concomitant]
     Active Substance: TACROLIMUS
  11. AMOXICILLIN [Concomitant]
     Active Substance: AMOXICILLIN
  12. BIOTIN [Concomitant]
     Active Substance: BIOTIN
  13. IRON [Concomitant]
     Active Substance: IRON
  14. ARANESP [Concomitant]
     Active Substance: DARBEPOETIN ALFA
  15. COLACE [Concomitant]
     Active Substance: DOCUSATE SODIUM
  16. BUMETANIDE [Concomitant]
     Active Substance: BUMETANIDE
  17. ELIQUIS [Concomitant]
     Active Substance: APIXABAN
  18. ATORVASTATIN [Concomitant]
     Active Substance: ATORVASTATIN

REACTIONS (1)
  - Death [Fatal]
